FAERS Safety Report 11074121 (Version 2)
Quarter: 2015Q2

REPORT INFORMATION
  Report Type: Spontaneous
  Country: US (occurrence: None)
  Receive Date: 20150427
  Receipt Date: 20150511
  Transmission Date: 20150821
  Serious: Yes (Life-Threatening, Hospitalization, Other)
  Sender: FDA-Public Use
  Company Number: ADR-2015-00816

PATIENT
  Age: 72 Year
  Sex: Female

DRUGS (3)
  1. BACLOFEN INTRATHECAL [Suspect]
     Active Substance: BACLOFEN
     Indication: PAIN
  2. KETAMINE [Suspect]
     Active Substance: KETAMINE
  3. FENTANYL INTRATHECAL [Suspect]
     Active Substance: FENTANYL
     Indication: PAIN

REACTIONS (4)
  - Bedridden [None]
  - Terminal state [None]
  - Dementia [None]
  - Unevaluable event [None]
